FAERS Safety Report 6100938-3 (Version None)
Quarter: 2009Q1

REPORT INFORMATION
  Report Type: 
  Country: None (occurrence: None)
  Receive Date: 20090220
  Receipt Date: 20090206
  Transmission Date: 20090719
  Serious: Yes (Death)
  Sender: FDA-Public Use
  Company Number: B0559545A

PATIENT
  Sex: 0

DRUGS (4)
  1. MELPHALAN (FORMULATION UNKNOWN) (MELPHALAN) (GENERIC) [Suspect]
     Indication: HODGKIN'S DISEASE
  2. CYTARABINE [Suspect]
     Indication: HODGKIN'S DISEASE
  3. ETOPOSIDE [Suspect]
     Indication: HODGKIN'S DISEASE
  4. CARMUSTINE [Suspect]
     Indication: NON-HODGKIN'S LYMPHOMA

REACTIONS (1)
  - LEUKAEMIA [None]
